FAERS Safety Report 18418721 (Version 6)
Quarter: 2022Q1

REPORT INFORMATION
  Report Type: Report from Study
  Country: US (occurrence: US)
  Receive Date: 20201023
  Receipt Date: 20220117
  Transmission Date: 20220423
  Serious: Yes (Death, Hospitalization, Other)
  Sender: FDA-Public Use
  Company Number: US-ACADIA PHARMACEUTICALS INC.-ACA-2020-PIM-003150

PATIENT
  Sex: Male

DRUGS (11)
  1. NUPLAZID [Suspect]
     Active Substance: PIMAVANSERIN TARTRATE
     Indication: Parkinson^s disease psychosis
     Dosage: 20 MILLIGRAM, QD
     Route: 048
  2. NUPLAZID [Suspect]
     Active Substance: PIMAVANSERIN TARTRATE
     Indication: Hallucination
     Dosage: 30 MILLIGRAM, QD
     Route: 048
  3. NUPLAZID [Suspect]
     Active Substance: PIMAVANSERIN TARTRATE
     Indication: Delusion
  4. NUPLAZID [Suspect]
     Active Substance: PIMAVANSERIN TARTRATE
     Indication: Parkinson^s disease psychosis
     Dosage: 34 MILLIGRAM, QD
     Route: 048
     Dates: start: 20200916, end: 2020
  5. NUPLAZID [Suspect]
     Active Substance: PIMAVANSERIN TARTRATE
     Indication: Hallucination
     Dosage: 34 MG EVERY OTHER DAY
     Route: 065
     Dates: start: 2020
  6. NUPLAZID [Suspect]
     Active Substance: PIMAVANSERIN TARTRATE
     Indication: Delusion
  7. MODERNA COVID-19 VACCINE [Suspect]
     Active Substance: ELASOMERAN
     Dosage: UNK
  8. CARBIDOPA\LEVODOPA [Concomitant]
     Active Substance: CARBIDOPA\LEVODOPA
     Indication: Product used for unknown indication
  9. EFFEXOR [Concomitant]
     Active Substance: VENLAFAXINE HYDROCHLORIDE
     Indication: Product used for unknown indication
  10. EMBRAN [Concomitant]
     Indication: Product used for unknown indication
  11. VITAMINS NOS [Concomitant]
     Active Substance: VITAMINS
     Indication: Product used for unknown indication

REACTIONS (30)
  - Death [Fatal]
  - Adverse drug reaction [Unknown]
  - Fall [Unknown]
  - Fatigue [Unknown]
  - Underdose [Unknown]
  - Disturbance in attention [Not Recovered/Not Resolved]
  - Delusion [Not Recovered/Not Resolved]
  - Gait inability [Not Recovered/Not Resolved]
  - Movement disorder [Not Recovered/Not Resolved]
  - Delusion [Not Recovered/Not Resolved]
  - Cognitive disorder [Unknown]
  - Abnormal behaviour [Unknown]
  - Speech disorder [Unknown]
  - Sleep talking [Unknown]
  - Prescribed underdose [Recovered/Resolved]
  - Product prescribing error [Recovered/Resolved]
  - Product dose omission issue [Recovered/Resolved]
  - Therapeutic response unexpected [Not Recovered/Not Resolved]
  - Urinary incontinence [Unknown]
  - Product dose omission issue [Recovered/Resolved]
  - General physical health deterioration [Unknown]
  - Underdose [Not Recovered/Not Resolved]
  - Balance disorder [Unknown]
  - Delusion [Unknown]
  - Agitation [Unknown]
  - Aggression [Unknown]
  - Gait disturbance [Not Recovered/Not Resolved]
  - Confusional state [Not Recovered/Not Resolved]
  - Confusional state [Unknown]
  - Gait disturbance [Unknown]

NARRATIVE: CASE EVENT DATE: 20200101
